FAERS Safety Report 6644726-8 (Version None)
Quarter: 2010Q1

REPORT INFORMATION
  Report Type: 
  Country: None (occurrence: None)
  Receive Date: 20100322
  Receipt Date: 20100310
  Transmission Date: 20100710
  Serious: Yes (Other)
  Sender: FDA-Public Use
  Company Number: US-PFIZER INC-2010031151

PATIENT
  Sex: Female
  Weight: 79 kg

DRUGS (1)
  1. DETROL LA [Suspect]
     Indication: URINARY INCONTINENCE
     Dosage: 4 MG, 1X/DAY
     Route: 048

REACTIONS (6)
  - ASTHMA [None]
  - DRY EYE [None]
  - DRY SKIN [None]
  - NASAL DRYNESS [None]
  - OCULAR HYPERAEMIA [None]
  - ROSACEA [None]
